FAERS Safety Report 8146696-2 (Version None)
Quarter: 2012Q1

REPORT INFORMATION
  Report Type: 
  Country: None (occurrence: None)
  Receive Date: 20120217
  Receipt Date: 20120214
  Transmission Date: 20120608
  Serious: No
  Sender: FDA-Public Use
  Company Number: US-ABBOTT-12P-163-0904613-00

PATIENT
  Sex: Female
  Weight: 63.56 kg

DRUGS (2)
  1. LISINOPRIL [Concomitant]
     Indication: PRODUCT USED FOR UNKNOWN INDICATION
  2. SIMCOR [Suspect]
     Indication: LOW DENSITY LIPOPROTEIN INCREASED
     Dosage: 500/20MG EVERY NIGHT
     Dates: start: 20120209

REACTIONS (4)
  - PRURITUS [None]
  - SKIN BURNING SENSATION [None]
  - RASH PAPULAR [None]
  - FLUSHING [None]
